FAERS Safety Report 7828907 (Version 4)
Quarter: 2013Q3

REPORT INFORMATION
  Report Type: Spontaneous
  Country: US (occurrence: US)
  Receive Date: 20110225
  Receipt Date: 20130808
  Transmission Date: 20140515
  Serious: Yes (Hospitalization)
  Sender: FDA-Public Use
  Company Number: US-B.I. PHARMACEUTICALS,INC./RIDGEFIELD-2011-BP-04745BP

PATIENT
  Age: 79 Year
  Sex: Male

DRUGS (14)
  1. PRADAXA [Suspect]
     Indication: ATRIAL FIBRILLATION
     Dosage: 300 MG
     Route: 048
     Dates: start: 20110205, end: 20110216
  2. ASPIRIN [Concomitant]
     Indication: CORONARY ARTERY DISEASE
     Dosage: 81 MG
     Route: 048
     Dates: end: 20110216
  3. ALLOPURINOL [Concomitant]
     Dosage: 300 MG
     Route: 048
  4. ZOCOR [Concomitant]
     Route: 048
  5. ZANTAC [Concomitant]
     Dosage: 300 MG
  6. UROXATROL [Concomitant]
     Indication: BENIGN PROSTATIC HYPERPLASIA
     Dosage: 10 MG
     Route: 048
  7. PAXIL [Concomitant]
     Dosage: 20 MG
  8. LOPRESSOR [Concomitant]
     Dosage: 25 MG
  9. MIRALAX [Concomitant]
     Route: 048
  10. LOSARTAN [Concomitant]
     Indication: HYPERTENSION
     Route: 048
  11. METOPROLOL [Concomitant]
  12. TRENTAL [Concomitant]
  13. VITAMIN D [Concomitant]
     Route: 048
  14. COLCHICINE [Concomitant]
     Indication: GOUT
     Route: 048

REACTIONS (16)
  - Gastrointestinal haemorrhage [Recovered/Resolved]
  - Gastric mucosal lesion [Unknown]
  - Renal failure [Unknown]
  - Dizziness [Unknown]
  - Dyspnoea [Unknown]
  - Hypotension [Unknown]
  - Melaena [Unknown]
  - Asthenia [Unknown]
  - Back pain [Unknown]
  - Muscle spasms [Unknown]
  - Abdominal pain [Unknown]
  - Decreased appetite [Unknown]
  - Anaemia [Unknown]
  - Contusion [Unknown]
  - Pallor [Unknown]
  - Thrombocytopenia [Not Recovered/Not Resolved]
